FAERS Safety Report 9659765 (Version 1)
Quarter: 2013Q4

REPORT INFORMATION
  Report Type: Spontaneous
  Country: US (occurrence: US)
  Receive Date: 20131031
  Receipt Date: 20131031
  Transmission Date: 20140711
  Serious: No
  Sender: FDA-Public Use
  Company Number: US-PFIZER INC-2013307544

PATIENT
  Age: 68 Year
  Sex: Male
  Weight: 99.77 kg

DRUGS (4)
  1. ADVIL [Suspect]
     Indication: PAIN
     Dosage: 256 MG, ONCE
     Dates: start: 201310, end: 201310
  2. ADVIL [Suspect]
     Indication: LIGAMENT SPRAIN
  3. LOSARTAN [Concomitant]
     Indication: HYPERTENSION
     Dosage: 100 MG, DAILY
  4. NOVOLOG [Concomitant]
     Indication: DIABETES MELLITUS
     Dosage: UNK, AS NEEDED

REACTIONS (1)
  - Drug ineffective [Unknown]
